FAERS Safety Report 18381827 (Version 1)
Quarter: 2020Q4

REPORT INFORMATION
  Report Type: Spontaneous
  Country: US (occurrence: US)
  Receive Date: 20201013
  Receipt Date: 20201013
  Transmission Date: 20210114
  Serious: Yes (Hospitalization)
  Sender: FDA-Public Use
  Company Number: None

PATIENT
  Age: 61 Year
  Sex: Female

DRUGS (4)
  1. XELJANZ XR [Suspect]
     Active Substance: TOFACITINIB CITRATE
     Indication: RHEUMATOID ARTHRITIS
     Route: 048
     Dates: start: 20190306
  2. PROVENTIL [Concomitant]
     Active Substance: ALBUTEROL
  3. PLAQUENIL [Concomitant]
     Active Substance: HYDROXYCHLOROQUINE SULFATE
  4. ATENOLOL ADVAIR DISKUS [Concomitant]

REACTIONS (2)
  - Therapy interrupted [None]
  - Oxygen saturation decreased [None]

NARRATIVE: CASE EVENT DATE: 20200924
